FAERS Safety Report 8311265 (Version 3)
Quarter: 2012Q4

REPORT INFORMATION
  Report Type: 
  Country: IL (occurrence: IL)
  Receive Date: 20111227
  Receipt Date: 20121105
  Transmission Date: 20130627
  Serious: Yes (Hospitalization)
  Sender: FDA-Public Use
  Company Number: PHHO2011IL021225

PATIENT
  Age: 70 Year
  Sex: Male
  Weight: 79 kg

DRUGS (5)
  1. PLACEBO [Suspect]
     Indication: CARDIAC FAILURE
     Route: 048
     Dates: start: 20111102, end: 20111217
  2. METOLAZONE [Suspect]
     Indication: CARDIAC FAILURE CHRONIC
     Dosage: 2.5 mg, QD
     Dates: start: 20111117
  3. ENALADEX [Suspect]
     Indication: CARDIAC FAILURE CHRONIC
     Dosage: 2.5 mg, BID
     Dates: start: 20111117
  4. FUSID [Suspect]
     Indication: CARDIAC FAILURE CHRONIC
     Dosage: 80 mg, QD
     Dates: start: 20111110
  5. ALDOSPIRONE [Suspect]
     Indication: CARDIAC FAILURE CHRONIC
     Dosage: 25 mg, QD
     Dates: start: 20111117

REACTIONS (5)
  - Renal failure acute [Not Recovered/Not Resolved]
  - Pneumonia [Recovered/Resolved]
  - Pulmonary congestion [Recovered/Resolved]
  - Concomitant disease progression [Recovered/Resolved]
  - Renal failure acute [None]
